FAERS Safety Report 21332907 (Version 1)
Quarter: 2022Q3

REPORT INFORMATION
  Report Type: Spontaneous
  Country: US (occurrence: US)
  Receive Date: 20220914
  Receipt Date: 20220914
  Transmission Date: 20221027
  Serious: No
  Sender: FDA-Public Use
  Company Number: US-BEH-2022149361

PATIENT
  Sex: Female

DRUGS (1)
  1. PRIVIGEN [Suspect]
     Active Substance: HUMAN IMMUNOGLOBULIN G
     Indication: Myositis
     Dosage: 25 GRAM, FOR 2 DAYS, EVERY 6 WEEKS (OVER 3 HOURS)
     Route: 042
     Dates: start: 201705

REACTIONS (3)
  - Blood pressure systolic increased [Unknown]
  - No adverse event [Unknown]
  - Off label use [Unknown]
